FAERS Safety Report 11311736 (Version 3)
Quarter: 2015Q3

REPORT INFORMATION
  Report Type: Spontaneous
  Country: IT (occurrence: IT)
  Receive Date: 20150727
  Receipt Date: 20150828
  Transmission Date: 20151125
  Serious: Yes (Hospitalization)
  Sender: FDA-Public Use
  Company Number: IT-009507513-1507ITA010999

PATIENT
  Age: 64 Year
  Sex: Female
  Weight: 60 kg

DRUGS (10)
  1. LANSOPRAZOLE. [Concomitant]
     Active Substance: LANSOPRAZOLE
     Indication: GASTRITIS
     Dosage: UNK
     Route: 048
     Dates: start: 2012
  2. AKINETON [Concomitant]
     Active Substance: BIPERIDEN HYDROCHLORIDE
  3. ALLOPURINOL. [Interacting]
     Active Substance: ALLOPURINOL
     Indication: HYPERURICAEMIA
     Dosage: TOTAL DAILY DOSE 300MG
     Route: 048
     Dates: start: 20150307, end: 20150327
  4. LASIX [Concomitant]
     Active Substance: FUROSEMIDE
     Indication: HYPERTENSION
     Dosage: UNK
     Route: 048
     Dates: start: 2012
  5. OMEGA-3 ACIDS [Concomitant]
     Active Substance: OMEGA-3 FATTY ACIDS
  6. ABILIFY [Concomitant]
     Active Substance: ARIPIPRAZOLE
     Indication: PSYCHOTIC DISORDER
     Dosage: UNK
     Route: 048
     Dates: start: 20130101, end: 20150410
  7. SIMVASTATIN. [Suspect]
     Active Substance: SIMVASTATIN
     Indication: DYSLIPIDAEMIA
     Dosage: TOTAL DAILY DOSE: 20MG
     Route: 048
     Dates: start: 2012, end: 20150410
  8. CARDIOASPIRIN [Concomitant]
     Active Substance: ASPIRIN
     Dosage: UNK
     Route: 048
     Dates: start: 2012
  9. DAPAROX [Concomitant]
     Active Substance: PAROXETINE HYDROCHLORIDE
  10. RAMIPRIL. [Concomitant]
     Active Substance: RAMIPRIL
     Indication: HYPERTENSION
     Dosage: UNK
     Route: 048
     Dates: start: 2012

REACTIONS (6)
  - Drug interaction [Recovering/Resolving]
  - Asthenia [Recovering/Resolving]
  - Rhabdomyolysis [Recovering/Resolving]
  - Acute kidney injury [Recovering/Resolving]
  - Hepatic failure [Recovering/Resolving]
  - Anaemia [Recovering/Resolving]

NARRATIVE: CASE EVENT DATE: 20150326
